FAERS Safety Report 21934824 (Version 2)
Quarter: 2023Q1

REPORT INFORMATION
  Report Type: Spontaneous
  Country: US (occurrence: None)
  Receive Date: 20230201
  Receipt Date: 20230210
  Transmission Date: 20230418
  Serious: Yes (Hospitalization)
  Sender: FDA-Public Use
  Company Number: 2023A020668

PATIENT
  Age: 31920 Day
  Sex: Female

DRUGS (1)
  1. BUDESONIDE\FORMOTEROL FUMARATE DIHYDRATE [Suspect]
     Active Substance: BUDESONIDE\FORMOTEROL FUMARATE DIHYDRATE
     Indication: Chronic obstructive pulmonary disease
     Dosage: 80/4.5 MCG, 120 INHALATION INHALER, TWO PUFFS TWICE A DAY
     Route: 055
     Dates: start: 202011

REACTIONS (6)
  - Chronic obstructive pulmonary disease [Recovered/Resolved]
  - Product use issue [Unknown]
  - Product dose omission issue [Recovered/Resolved]
  - Device use issue [Unknown]
  - Product packaging quantity issue [Unknown]
  - Device delivery system issue [Unknown]

NARRATIVE: CASE EVENT DATE: 20230121
